FAERS Safety Report 4443344-X (Version None)
Quarter: 2004Q3

REPORT INFORMATION
  Report Type: 
  Country: None (occurrence: None)
  Receive Date: 20040907
  Receipt Date: 20040907
  Transmission Date: 20050211
  Serious: Yes (Other)
  Sender: FDA-Public Use
  Company Number: None

PATIENT
  Age: 69 Year
  Sex: Male
  Weight: 94 kg

DRUGS (9)
  1. SIMVASTATIN [Suspect]
  2. OMERPRAZOLE [Concomitant]
  3. SIMVASTATIN [Concomitant]
  4. HYDROXYZINE HCL [Concomitant]
  5. METFORMIN HCL [Concomitant]
  6. FLUOCINONIDE [Concomitant]
  7. ROFECOXIB [Concomitant]
  8. CLOTRIMAZOLE [Concomitant]
  9. FLUOCINOLONE ACETONIDE [Concomitant]

REACTIONS (1)
  - RASH [None]
